FAERS Safety Report 7878224-0 (Version None)
Quarter: 2011Q4

REPORT INFORMATION
  Report Type: 
  Country: None (occurrence: None)
  Receive Date: 20111101
  Receipt Date: 20111024
  Transmission Date: 20120403
  Serious: No
  Sender: FDA-Public Use
  Company Number: US-BIOGENIDEC-2011BI040593

PATIENT
  Age: 46 Year
  Sex: Female

DRUGS (5)
  1. SLEEPING PILLS (NOS) [Concomitant]
     Indication: INSOMNIA
     Dates: start: 20060101
  2. STEROID CREAM (NOS) [Concomitant]
     Indication: PREMEDICATION
     Dates: start: 20110501
  3. 8 HOUR TYLENOL [Concomitant]
     Indication: PREMEDICATION
     Dates: start: 20110501
  4. TYSABRI [Concomitant]
     Indication: PRODUCT USED FOR UNKNOWN INDICATION
  5. AVONEX [Suspect]
     Indication: MULTIPLE SCLEROSIS
     Route: 030
     Dates: start: 20110201

REACTIONS (4)
  - MIGRAINE [None]
  - INFLUENZA LIKE ILLNESS [None]
  - INJECTION SITE HAEMATOMA [None]
  - GAIT DISTURBANCE [None]
